FAERS Safety Report 7420190-6 (Version None)
Quarter: 2011Q2

REPORT INFORMATION
  Report Type: 
  Country: None (occurrence: None)
  Receive Date: 20110418
  Receipt Date: 20110412
  Transmission Date: 20111010
  Serious: Yes (Hospitalization)
  Sender: FDA-Public Use
  Company Number: JP-PFIZER INC-2011080824

PATIENT
  Age: 59 Year
  Sex: Male

DRUGS (2)
  1. LYRICA [Suspect]
     Dosage: 100MG DAILY
     Dates: start: 20110101
  2. LYRICA [Suspect]
     Dosage: 25 MG, 2X/DAY

REACTIONS (1)
  - DUODENAL ULCER [None]
